FAERS Safety Report 4381590-4 (Version None)
Quarter: 2004Q2

REPORT INFORMATION
  Report Type: 
  Country: None (occurrence: None)
  Receive Date: 20040614
  Receipt Date: 20030530
  Transmission Date: 20050107
  Serious: Yes (Hospitalization)
  Sender: FDA-Public Use
  Company Number: WAES 0306USA00062

PATIENT
  Age: 73 Year
  Sex: Male
  Weight: 87.9978 kg

DRUGS (4)
  1. COZAAR [Suspect]
     Dosage: 25 MG/DAILY/PO
     Route: 048
     Dates: start: 20010101, end: 20030701
  2. COREG [Concomitant]
  3. COUMADIN [Concomitant]
  4. TOPROL-XL [Concomitant]

REACTIONS (1)
  - NEUROPATHY PERIPHERAL [None]
